FAERS Safety Report 6089269-8 (Version None)
Quarter: 2009Q1

REPORT INFORMATION
  Report Type: 
  Country: None (occurrence: None)
  Receive Date: 20090224
  Receipt Date: 20090217
  Transmission Date: 20090719
  Serious: Yes (Hospitalization)
  Sender: FDA-Public Use
  Company Number: FR-MERCK-0902FRA00054

PATIENT
  Age: 65 Year
  Sex: Male

DRUGS (5)
  1. EMEND [Suspect]
     Indication: PROPHYLAXIS OF NAUSEA AND VOMITING
     Route: 048
     Dates: start: 20081101, end: 20081101
  2. CARBOPLATIN [Suspect]
     Indication: LUNG NEOPLASM MALIGNANT
     Route: 041
     Dates: start: 20081124, end: 20081126
  3. ETOPOSIDE [Suspect]
     Indication: LUNG NEOPLASM MALIGNANT
     Route: 041
     Dates: start: 20081124, end: 20081126
  4. ONDANSETRON HYDROCHLORIDE [Suspect]
     Indication: PROPHYLAXIS OF NAUSEA AND VOMITING
     Route: 065
     Dates: start: 20081101, end: 20081101
  5. LENOGRASTIM [Suspect]
     Indication: NEUTROPENIA
     Route: 042
     Dates: start: 20081101, end: 20081101

REACTIONS (3)
  - CHOLESTASIS [None]
  - LIPASE INCREASED [None]
  - TRANSAMINASES INCREASED [None]
